FAERS Safety Report 9465489 (Version 3)
Quarter: 2014Q1

REPORT INFORMATION
  Report Type: Report from Study
  Country: US (occurrence: US)
  Receive Date: 20130820
  Receipt Date: 20140116
  Transmission Date: 20141002
  Serious: Yes (Other)
  Sender: FDA-Public Use
  Company Number: PHEH2013US017410

PATIENT
  Sex: Female
  Weight: 48.53 kg

DRUGS (9)
  1. TOBI [Suspect]
     Indication: CYSTIC FIBROSIS
     Dosage: 1 AMPOULE, BID AS DIRECTED FOR 28 DAYS EVERY OTHER MONTH
     Route: 055
  2. CREON [Concomitant]
     Dosage: 5 DF, UNK
  3. ZYRTEC [Concomitant]
     Dosage: UNK
  4. AZITHROMYCIN [Concomitant]
     Dosage: UNK
  5. FLONASE [Concomitant]
     Dosage: UNK
  6. ALBUTEROL [Concomitant]
     Route: 055
  7. PRILOSEC [Concomitant]
     Dosage: UNK
  8. ADEKS [Concomitant]
     Dosage: UNK
  9. PRENATAL [Concomitant]
     Dosage: 1 DF

REACTIONS (4)
  - Infection [Unknown]
  - Deafness [Recovered/Resolved]
  - Fear [Unknown]
  - Cough [Not Recovered/Not Resolved]
